FAERS Safety Report 9840667 (Version 1)
Quarter: 2013Q4

REPORT INFORMATION
  Report Type: Spontaneous
  Country: PL (occurrence: None)
  Receive Date: 20131211
  Receipt Date: 20131211
  Transmission Date: 20140711
  Serious: Yes (Hospitalization)
  Sender: FDA-Public Use
  Company Number: SPV1-2009-02402

PATIENT
  Age: 11 Year
  Sex: Male

DRUGS (3)
  1. ELAPRASE [Suspect]
     Indication: MUCOPOLYSACCHARIDOSIS II
     Route: 042
     Dates: start: 20091027
  2. HYDROCORTISONE (HYDROCORTISONE) [Concomitant]
  3. CLEMASTINE (CLEMASTINE) [Concomitant]

REACTIONS (3)
  - Infusion related reaction [None]
  - Rash macular [None]
  - Rash pruritic [None]
